FAERS Safety Report 8437913-X (Version None)
Quarter: 2012Q2

REPORT INFORMATION
  Report Type: 
  Country: None (occurrence: None)
  Receive Date: 20120614
  Receipt Date: 20120522
  Transmission Date: 20120825
  Serious: No
  Sender: FDA-Public Use
  Company Number: US-AMGEN-USASP2012032266

PATIENT
  Age: 62 Year
  Sex: Female

DRUGS (3)
  1. CALCIUM [Concomitant]
     Dosage: UNK
  2. VITAMIN D [Concomitant]
     Dosage: 2 IU, UNK
  3. PROLIA [Suspect]
     Indication: OSTEOPOROSIS POSTMENOPAUSAL
     Dosage: UNK
     Dates: start: 20120501

REACTIONS (5)
  - PAIN [None]
  - PARAESTHESIA [None]
  - HYPOAESTHESIA [None]
  - INFLUENZA LIKE ILLNESS [None]
  - FATIGUE [None]
